FAERS Safety Report 13226249 (Version 5)
Quarter: 2021Q1

REPORT INFORMATION
  Report Type: Spontaneous
  Country: US (occurrence: US)
  Receive Date: 20170213
  Receipt Date: 20210111
  Transmission Date: 20210419
  Serious: Yes (Other)
  Sender: FDA-Public Use
  Company Number: US-PFIZER INC-2017057052

PATIENT
  Age: 73 Year
  Sex: Female
  Weight: 58.5 kg

DRUGS (2)
  1. RELPAX [Suspect]
     Active Substance: ELETRIPTAN HYDROBROMIDE
     Indication: MIGRAINE
     Dosage: 40 MG, AS NEEDED (2?3 TIMES A WEEK)
     Route: 048
     Dates: start: 2009
  2. WELLBUTRIN [Concomitant]
     Active Substance: BUPROPION HYDROCHLORIDE
     Indication: STRESS
     Dosage: 300 MG, DAILY

REACTIONS (5)
  - Drug ineffective [Recovered/Resolved]
  - Nausea [Recovered/Resolved]
  - Malaise [Recovering/Resolving]
  - Headache [Recovered/Resolved]
  - Dyspnoea [Recovered/Resolved]

NARRATIVE: CASE EVENT DATE: 201609
